FAERS Safety Report 13622244 (Version 1)
Quarter: 2017Q2

REPORT INFORMATION
  Report Type: Spontaneous
  Country: US (occurrence: US)
  Receive Date: 20170607
  Receipt Date: 20170607
  Transmission Date: 20170830
  Serious: No
  Sender: FDA-Public Use
  Company Number: US-ROCHE-702935

PATIENT
  Sex: Male
  Weight: 97.5 kg

DRUGS (5)
  1. FUZEON [Suspect]
     Active Substance: ENFUVIRTIDE
     Indication: HIV INFECTION
     Route: 058
  2. FUZEON [Suspect]
     Active Substance: ENFUVIRTIDE
     Route: 058
  3. RITONAVIR. [Concomitant]
     Active Substance: RITONAVIR
     Route: 065
  4. INVIRASE [Concomitant]
     Active Substance: SAQUINAVIR MESYLATE
     Route: 065
  5. ACTIVASE [Concomitant]
     Active Substance: ALTEPLASE
     Route: 065

REACTIONS (5)
  - Injection site irritation [Unknown]
  - Injection site hypertrophy [Unknown]
  - Gait disturbance [Unknown]
  - Medication error [Unknown]
  - Injection site extravasation [Unknown]
